FAERS Safety Report 23315719 (Version 1)
Quarter: 2023Q4

REPORT INFORMATION
  Report Type: Spontaneous
  Country: US (occurrence: None)
  Receive Date: 20231219
  Receipt Date: 20231219
  Transmission Date: 20240110
  Serious: No
  Sender: FDA-Public Use
  Company Number: None

PATIENT
  Age: 100 Year
  Sex: Female

DRUGS (1)
  1. EVENITY [Suspect]
     Active Substance: ROMOSOZUMAB-AQQG
     Indication: Senile osteoporosis
     Dosage: INJECT 210MG (2 SYRINGES ) SUBCUTANEOUSLY ONCE A MONTH AS DIRECTED    ??THERAPY STOPPED:  ON HOLD
     Route: 058
     Dates: start: 202309

REACTIONS (1)
  - Abdominal hernia obstructive [None]
